FAERS Safety Report 19952986 (Version 1)
Quarter: 2021Q4

REPORT INFORMATION
  Report Type: Spontaneous
  Country: US (occurrence: US)
  Receive Date: 20211012
  Receipt Date: 20211012
  Transmission Date: 20220303
  Serious: Yes (Life-Threatening)
  Sender: FDA-Public Use
  Company Number: None

PATIENT
  Age: 70 Year
  Sex: Male
  Weight: 117 kg

DRUGS (1)
  1. TOCILIZUMAB [Suspect]
     Active Substance: TOCILIZUMAB
     Dosage: ?          OTHER ROUTE:IV
     Dates: start: 20210823, end: 20210823

REACTIONS (3)
  - Constipation [None]
  - Gastric ulcer perforation [None]
  - Gastric haemorrhage [None]

NARRATIVE: CASE EVENT DATE: 20210825
